FAERS Safety Report 11314745 (Version 2)
Quarter: 2015Q3

REPORT INFORMATION
  Report Type: Other
  Country: US (occurrence: US)
  Receive Date: 20150727
  Receipt Date: 20150730
  Transmission Date: 20151125
  Serious: No
  Sender: FDA-Public Use
  Company Number: US-BRECKENRIDGE PHARMACEUTICAL, INC.-1040788

PATIENT
  Age: 34 Year
  Sex: Male
  Weight: 90.46 kg

DRUGS (1)
  1. DULOXETINE DELAYED-RELEASE [Suspect]
     Active Substance: DULOXETINE
     Indication: DEPRESSION
     Route: 048

REACTIONS (1)
  - Drug ineffective [Unknown]

NARRATIVE: CASE EVENT DATE: 20150713
